FAERS Safety Report 7636543-7 (Version None)
Quarter: 2011Q3

REPORT INFORMATION
  Report Type: 
  Country: None (occurrence: None)
  Receive Date: 20110726
  Receipt Date: 20110429
  Transmission Date: 20111222
  Serious: No
  Sender: FDA-Public Use
  Company Number: US-BAYER-2011-038273

PATIENT
  Sex: Male
  Weight: 113 kg

DRUGS (3)
  1. ASPIRIN [Concomitant]
  2. INSULIN [Concomitant]
  3. ALEVE (CAPLET) [Suspect]
     Indication: BACK PAIN
     Route: 048

REACTIONS (1)
  - NO ADVERSE EVENT [None]
